FAERS Safety Report 6880817-4 (Version None)
Quarter: 2010Q3

REPORT INFORMATION
  Report Type: 
  Country: None (occurrence: None)
  Receive Date: 20100728
  Receipt Date: 20100720
  Transmission Date: 20110219
  Serious: Yes (Other)
  Sender: FDA-Public Use
  Company Number: CH-NOVOPROD-311714

PATIENT
  Age: 83 Year
  Sex: Male
  Weight: 60 kg

DRUGS (1)
  1. LEVEMIR [Suspect]
     Indication: INCREASED INSULIN REQUIREMENT
     Dosage: 10 IU / S.C.
     Dates: start: 20100517, end: 20100611

REACTIONS (5)
  - BLISTER [None]
  - DYSPEPSIA [None]
  - HYPERSENSITIVITY [None]
  - MALAISE [None]
  - OEDEMA [None]
